FAERS Safety Report 13028035 (Version 1)
Quarter: 2016Q4

REPORT INFORMATION
  Report Type: Spontaneous
  Country: US (occurrence: US)
  Receive Date: 20161214
  Receipt Date: 20161214
  Transmission Date: 20170207
  Serious: No
  Sender: FDA-Public Use
  Company Number: US-PFIZER INC-2016570945

PATIENT
  Age: 67 Year
  Sex: Female

DRUGS (5)
  1. ZANAFLEX [Suspect]
     Active Substance: TIZANIDINE HYDROCHLORIDE
     Dosage: UNK
  2. ROBAXIN [Suspect]
     Active Substance: METHOCARBAMOL
     Dosage: UNK
  3. FLEXERIL [Suspect]
     Active Substance: CYCLOBENZAPRINE HYDROCHLORIDE
     Dosage: UNK
  4. NEURONTIN [Suspect]
     Active Substance: GABAPENTIN
     Dosage: UNK
  5. SKELAXIN [Suspect]
     Active Substance: METAXALONE
     Dosage: UNK

REACTIONS (3)
  - Drug hypersensitivity [Unknown]
  - Dizziness [Unknown]
  - Nightmare [Unknown]
